FAERS Safety Report 7033941-X (Version None)
Quarter: 2010Q4

REPORT INFORMATION
  Report Type: 
  Country: None (occurrence: None)
  Receive Date: 20101007
  Receipt Date: 20101005
  Transmission Date: 20110411
  Serious: Yes (Hospitalization, Disabling)
  Sender: FDA-Public Use
  Company Number: FR-MERCK-1009FRA00125

PATIENT
  Age: 58 Year
  Sex: Female

DRUGS (4)
  1. PRIMAXIN [Suspect]
     Indication: OSTEITIS
     Route: 042
     Dates: start: 20100408
  2. PRIMAXIN [Suspect]
     Route: 042
     Dates: start: 20100701, end: 20100709
  3. FOSFOCINA [Suspect]
     Indication: OSTEITIS
     Route: 042
     Dates: start: 20100408, end: 20100702
  4. TYGACIL [Suspect]
     Indication: OSTEITIS
     Route: 042
     Dates: start: 20100408, end: 20100702

REACTIONS (1)
  - PERIPHERAL SENSORIMOTOR NEUROPATHY [None]
